FAERS Safety Report 4300828-2 (Version None)
Quarter: 2004Q1

REPORT INFORMATION
  Report Type: 
  Country: None (occurrence: None)
  Receive Date: 20040218
  Receipt Date: 20040210
  Transmission Date: 20041129
  Serious: Yes (Death)
  Sender: FDA-Public Use
  Company Number: APP200400161

PATIENT
  Age: 63 Year
  Sex: Female

DRUGS (3)
  1. AMIODARONE HYDROCHLORIDE [Suspect]
     Indication: ATRIAL FIBRILLATION
     Dosage: UNK (150 MG, LOADING DOSE), INJECTION
     Dates: start: 20040208, end: 20040210
  2. AMIODARONE HYDROCHLORIDE [Suspect]
     Indication: ATRIAL FIBRILLATION
     Dosage: 1 MG EVERY 1 MINUTE FOR 6 HOURS (1 MG, 1 IN 1 MIN), INJECTION
     Dates: start: 20040208, end: 20040201
  3. AMIODARONE HYDROCHLORIDE [Suspect]
     Indication: ATRIAL FIBRILLATION
     Dosage: 0.5 MG/MIN OVER THE NEXT 18 HOURS (540 MG), INJECTION
     Dates: start: 20040201, end: 20040201

REACTIONS (4)
  - CARDIOGENIC SHOCK [None]
  - HEPATIC ENZYME INCREASED [None]
  - LIVER FUNCTION TEST ABNORMAL [None]
  - RENAL FUNCTION TEST ABNORMAL [None]
